FAERS Safety Report 6276775-6 (Version None)
Quarter: 2009Q3

REPORT INFORMATION
  Report Type: 
  Country: None (occurrence: None)
  Receive Date: 20090722
  Receipt Date: 20080819
  Transmission Date: 20100115
  Serious: No
  Sender: FDA-Public Use
  Company Number: US-BRISTOL-MYERS SQUIBB COMPANY-14307847

PATIENT

DRUGS (1)
  1. COUMADIN [Suspect]

REACTIONS (3)
  - FATIGUE [None]
  - SOMNOLENCE [None]
  - TEMPERATURE INTOLERANCE [None]
